FAERS Safety Report 4659563-3 (Version None)
Quarter: 2005Q2

REPORT INFORMATION
  Report Type: 
  Country: None (occurrence: None)
  Receive Date: 20050510
  Receipt Date: 20050427
  Transmission Date: 20051028
  Serious: Yes (Hospitalization, Other)
  Sender: FDA-Public Use
  Company Number: 2005066388

PATIENT
  Age: 82 Year
  Sex: Female

DRUGS (8)
  1. FRAGMIN [Suspect]
     Indication: CARDIAC DISORDER
     Dosage: 12500 I.U. (12500 I.U., 1 IN 1 D), PARENTERAL
     Route: 051
     Dates: start: 20040301
  2. CLOPIDOGREL BISULFATE [Suspect]
     Indication: CARDIAC DISORDER
     Dosage: 75 MG (75 MG, 1 IN 1 D), ORAL
     Route: 048
     Dates: start: 20040301, end: 20040602
  3. METOPROLOL SUCCINATE [Concomitant]
  4. FUROSEMIDE [Concomitant]
  5. NITROGLYCERIN [Concomitant]
  6. SIMVASTATIN [Concomitant]
  7. ISOSORBIDE MONONITRATE [Concomitant]
  8. PANTOPRAZOLE (PANTOPRAZOLE) [Concomitant]

REACTIONS (4)
  - ANAEMIA [None]
  - ARTHRALGIA [None]
  - RENAL IMPAIRMENT [None]
  - RETROPERITONEAL HAEMORRHAGE [None]
